FAERS Safety Report 10403588 (Version 1)
Quarter: 2014Q3

REPORT INFORMATION
  Report Type: Spontaneous
  Country: US (occurrence: US)
  Receive Date: 20140822
  Receipt Date: 20140822
  Transmission Date: 20150326
  Serious: Yes (Other)
  Sender: FDA-Public Use
  Company Number: US-ASTRAZENECA-2014SE61238

PATIENT
  Sex: Female

DRUGS (1)
  1. ENTOCORT EC [Suspect]
     Active Substance: BUDESONIDE
     Dosage: NOT REPORTED
     Route: 048

REACTIONS (2)
  - Crohn^s disease [Unknown]
  - Adverse event [Unknown]
